FAERS Safety Report 24362501 (Version 1)
Quarter: 2024Q3

REPORT INFORMATION
  Report Type: Report from Study
  Country: CA (occurrence: CA)
  Receive Date: 20240925
  Receipt Date: 20240925
  Transmission Date: 20241017
  Serious: Yes (Other)
  Sender: VERITY PHARMACEUTICALS
  Company Number: CA-VER-202400484

PATIENT
  Age: 82 Year
  Sex: Male

DRUGS (3)
  1. TRELSTAR [Suspect]
     Active Substance: TRIPTORELIN PAMOATE
     Indication: Prostate cancer
     Dosage: (11.25 MILLIGRAM(S), IN 3 MONTH)
     Route: 030
     Dates: start: 20240613, end: 20240613
  2. TRELSTAR [Suspect]
     Active Substance: TRIPTORELIN PAMOATE
     Indication: Prostate cancer
     Dosage: START DATE: 05-SEP-2024??(11.25 MILLIGRAM(S), IN 3 MONTH)
     Route: 030
     Dates: end: 20240905
  3. TRELSTAR [Suspect]
     Active Substance: TRIPTORELIN PAMOATE
     Indication: Prostate cancer
     Dosage: START DATE: 18-MAR-2024??(11.25 MILLIGRAM(S), IN 3 MONTH)
     Route: 030
     Dates: end: 20240318

REACTIONS (2)
  - Lymphoma [Not Recovered/Not Resolved]
  - Inappropriate schedule of product administration [Recovered/Resolved]

NARRATIVE: CASE EVENT DATE: 20240613
